FAERS Safety Report 20841982 (Version 1)
Quarter: 2022Q2

REPORT INFORMATION
  Report Type: Spontaneous
  Country: US (occurrence: US)
  Receive Date: 20220518
  Receipt Date: 20220518
  Transmission Date: 20220721
  Serious: Yes (Hospitalization, Other)
  Sender: FDA-Public Use
  Company Number: US-Calliditas-2022CAL00081

PATIENT
  Age: 34 Year
  Sex: Male

DRUGS (1)
  1. TARPEYO [Suspect]
     Active Substance: BUDESONIDE
     Indication: IgA nephropathy
     Dosage: 120 MG (4 MG CAPSULES) ONCE DAILY
     Route: 050
     Dates: start: 20220214

REACTIONS (3)
  - Transplant [Unknown]
  - Overdose [Recovered/Resolved]
  - End stage renal disease [Unknown]
